FAERS Safety Report 6300631-8 (Version None)
Quarter: 2009Q3

REPORT INFORMATION
  Report Type: 
  Country: None (occurrence: None)
  Receive Date: 20090806
  Receipt Date: 20090717
  Transmission Date: 20100115
  Serious: No
  Sender: FDA-Public Use
  Company Number: US-ABBOTT-09P-163-0586402-00

PATIENT
  Sex: Female
  Weight: 55.388 kg

DRUGS (2)
  1. DEPAKOTE ER [Suspect]
     Indication: CONVULSION
     Route: 048
     Dates: start: 20080101
  2. SERTRALINE [Suspect]
     Indication: PANIC ATTACK
     Route: 048
     Dates: end: 20090608

REACTIONS (6)
  - ABDOMINAL PAIN UPPER [None]
  - FEELING HOT [None]
  - HEADACHE [None]
  - NAUSEA [None]
  - SENSORY DISTURBANCE [None]
  - TREMOR [None]
